FAERS Safety Report 13084303 (Version 1)
Quarter: 2017Q1

REPORT INFORMATION
  Report Type: Spontaneous
  Country: US (occurrence: US)
  Receive Date: 20170104
  Receipt Date: 20170104
  Transmission Date: 20170428
  Serious: No
  Sender: FDA-Public Use
  Company Number: None

PATIENT

DRUGS (2)
  1. VALPROIC ACID. [Suspect]
     Active Substance: VALPROIC ACID
     Dosage: DOSAGE FORM - SYRUP
  2. DILANTIN-125 [Suspect]
     Active Substance: PHENYTOIN
     Dosage: DOSAGE FORM - SUSPENSION

REACTIONS (1)
  - Product preparation error [None]
